FAERS Safety Report 5553827-7 (Version None)
Quarter: 2007Q4

REPORT INFORMATION
  Report Type: 
  Country: None (occurrence: None)
  Receive Date: 20071213
  Receipt Date: 20071203
  Transmission Date: 20080405
  Serious: Yes (Other)
  Sender: FDA-Public Use
  Company Number: BR-ROCHE-535151

PATIENT
  Age: 35 Year
  Sex: Female
  Weight: 51 kg

DRUGS (1)
  1. ROACUTAN [Suspect]
     Indication: DRUG USE FOR UNKNOWN INDICATION
     Dosage: STRENGTH REPORTED AS 10-20 MG.
     Route: 048
     Dates: start: 20070101, end: 20071103

REACTIONS (2)
  - NO ADVERSE EVENT [None]
  - PREGNANCY [None]
